FAERS Safety Report 15959068 (Version 9)
Quarter: 2019Q2

REPORT INFORMATION
  Report Type: Spontaneous
  Country: US (occurrence: US)
  Receive Date: 20190214
  Receipt Date: 20190627
  Transmission Date: 20190711
  Serious: No
  Sender: FDA-Public Use
  Company Number: PHEH2019US005763

PATIENT
  Sex: Male

DRUGS (5)
  1. AFINITOR [Suspect]
     Active Substance: EVEROLIMUS
     Dosage: UNK,UNK, QD
     Route: 048
  2. LENVATINIB [Suspect]
     Active Substance: LENVATINIB
     Indication: RENAL CANCER
     Dosage: 18 MG, QD
     Route: 048
     Dates: start: 20190128
  3. LENVATINIB [Suspect]
     Active Substance: LENVATINIB
     Dosage: UNK
     Route: 065
     Dates: start: 20190116
  4. AFINITOR [Suspect]
     Active Substance: EVEROLIMUS
     Indication: RENAL CANCER
     Dosage: 5 MG, QD
     Route: 048
     Dates: start: 20190128
  5. LENVATINIB [Suspect]
     Active Substance: LENVATINIB
     Dosage: 14 MG, QD
     Route: 048

REACTIONS (8)
  - Nausea [Recovering/Resolving]
  - Fatigue [Recovering/Resolving]
  - Dehydration [Unknown]
  - Blood creatinine increased [Unknown]
  - Hypertension [Recovered/Resolved]
  - Peripheral swelling [Recovering/Resolving]
  - Diarrhoea [Recovering/Resolving]
  - Platelet count decreased [Unknown]
